FAERS Safety Report 6749769-1 (Version None)
Quarter: 2010Q2

REPORT INFORMATION
  Report Type: 
  Country: None (occurrence: None)
  Receive Date: 20100601
  Receipt Date: 20100525
  Transmission Date: 20101027
  Serious: Yes (Hospitalization, Other)
  Sender: FDA-Public Use
  Company Number: PHHO2008US01300

PATIENT
  Sex: Female
  Weight: 61.7 kg

DRUGS (9)
  1. AFINITOR [Suspect]
     Indication: CARCINOID TUMOUR
     Dosage: DOUBLE BLIND
     Route: 048
     Dates: start: 20071010
  2. BLINDED NO TREATMENT RECEIVED NOMED [Suspect]
     Indication: CARCINOID TUMOUR
     Dosage: DOUBLE BLIND
     Route: 048
     Dates: start: 20071010
  3. BLINDED PLACEBO COMP-PLA+ [Suspect]
     Indication: CARCINOID TUMOUR
     Dosage: DOUBLE BLIND
     Route: 048
     Dates: start: 20071010
  4. AFINITOR [Suspect]
     Dosage: DOUBLE BLIND
     Route: 048
  5. BLINDED NO TREATMENT RECEIVED NOMED [Suspect]
     Dosage: DOUBLE BLIND
     Route: 048
  6. BLINDED PLACEBO COMP-PLA+ [Suspect]
     Dosage: DOUBLE BLIND
     Route: 048
  7. SANDOSTATIN LAR [Suspect]
     Indication: CARCINOID TUMOUR
     Dosage: DOUBLE BLIND
     Dates: start: 20071010
  8. MULTI-VITAMINS [Concomitant]
  9. IBRUPROFEN [Concomitant]

REACTIONS (5)
  - COUGH [None]
  - DYSPNOEA [None]
  - INFLAMMATION [None]
  - NOCARDIOSIS [None]
  - PNEUMONITIS [None]
